FAERS Safety Report 10449609 (Version 3)
Quarter: 2015Q1

REPORT INFORMATION
  Report Type: Spontaneous
  Country: US (occurrence: US)
  Receive Date: 20140912
  Receipt Date: 20150210
  Transmission Date: 20150720
  Serious: No
  Sender: FDA-Public Use
  Company Number: US-PFIZER INC-2014252352

PATIENT
  Age: 70 Year
  Sex: Male

DRUGS (4)
  1. CYMBALTA [Concomitant]
     Active Substance: DULOXETINE HYDROCHLORIDE
     Dosage: 60 MG, UNK
     Dates: start: 200908
  2. LYRICA [Suspect]
     Active Substance: PREGABALIN
     Indication: NEURALGIA
     Dosage: 300 MG, UNK
     Dates: start: 2014, end: 2014
  3. LYRICA [Suspect]
     Active Substance: PREGABALIN
     Dosage: 400 MG, UNK
     Dates: start: 2014
  4. LYRICA [Suspect]
     Active Substance: PREGABALIN
     Indication: NEURALGIC AMYOTROPHY
     Dosage: 200 MG, 2X/DAY
     Dates: start: 200908

REACTIONS (3)
  - Product use issue [Unknown]
  - Pain [Not Recovered/Not Resolved]
  - Condition aggravated [Not Recovered/Not Resolved]

NARRATIVE: CASE EVENT DATE: 200908
